FAERS Safety Report 5137534-0 (Version None)
Quarter: 2006Q4

REPORT INFORMATION
  Report Type: 
  Country: None (occurrence: None)
  Receive Date: 20061030
  Receipt Date: 20051115
  Transmission Date: 20070319
  Serious: No
  Sender: FDA-Public Use
  Company Number: US-GLAXOSMITHKLINE-A0582419A

PATIENT
  Age: 67 Year
  Sex: Female

DRUGS (8)
  1. ADVAIR HFA [Suspect]
     Indication: DRUG USE FOR UNKNOWN INDICATION
     Dosage: 250MG TWICE PER DAY
     Route: 055
     Dates: end: 20051114
  2. COMBIVENT [Concomitant]
  3. SPIRIVA [Concomitant]
     Route: 065
  4. LIPITOR [Concomitant]
  5. DARVOCET [Concomitant]
  6. TRIAMTERENE [Concomitant]
     Route: 065
  7. ESTRADIOL INJ [Concomitant]
     Route: 065
  8. PREVACID [Concomitant]

REACTIONS (3)
  - DYSPHONIA [None]
  - DYSPNOEA [None]
  - THROAT TIGHTNESS [None]
